FAERS Safety Report 5051541-8 (Version None)
Quarter: 2006Q4

REPORT INFORMATION
  Report Type: 
  Country: None (occurrence: None)
  Receive Date: 20060711
  Receipt Date: 20060627
  Transmission Date: 20070319
  Serious: Yes (Hospitalization)
  Sender: FDA-Public Use
  Company Number: US-2006-003953

PATIENT
  Age: 28 Year
  Sex: Female

DRUGS (24)
  1. BETASERON [Suspect]
     Indication: RELAPSING-REMITTING MULTIPLE SCLEROSIS
     Dosage: 0.25 MI, EVERY 2D, SUBCUTANEOUS; SEE IMAGINE
     Route: 058
     Dates: start: 20050513, end: 20050525
  2. BETASERON [Suspect]
     Indication: RELAPSING-REMITTING MULTIPLE SCLEROSIS
     Dosage: 0.25 MI, EVERY 2D, SUBCUTANEOUS; SEE IMAGINE
     Route: 058
     Dates: start: 20050527, end: 20050608
  3. BETASERON [Suspect]
     Indication: RELAPSING-REMITTING MULTIPLE SCLEROSIS
     Dosage: 0.25 MI, EVERY 2D, SUBCUTANEOUS; SEE IMAGINE
     Route: 058
     Dates: start: 20050610, end: 20050701
  4. BETASERON [Suspect]
     Indication: RELAPSING-REMITTING MULTIPLE SCLEROSIS
     Dosage: 0.25 MI, EVERY 2D, SUBCUTANEOUS; SEE IMAGINE
     Route: 058
     Dates: start: 20050701, end: 20060201
  5. BETASERON [Suspect]
     Indication: RELAPSING-REMITTING MULTIPLE SCLEROSIS
     Dosage: 0.25 MI, EVERY 2D, SUBCUTANEOUS; SEE IMAGINE
     Route: 058
     Dates: start: 20060323, end: 20060331
  6. BETASERON [Suspect]
     Indication: RELAPSING-REMITTING MULTIPLE SCLEROSIS
     Dosage: 0.25 MI, EVERY 2D, SUBCUTANEOUS; SEE IMAGINE
     Route: 058
     Dates: start: 20060401
  7. BETASERON [Suspect]
     Indication: RELAPSING-REMITTING MULTIPLE SCLEROSIS
     Dosage: 20 MG, 1X/DAY; SUBCUTANEOUS
     Route: 058
     Dates: start: 20040923, end: 20050414
  8. EFFEXOR XR [Concomitant]
  9. IBUPROFEN [Concomitant]
  10. NORTRIPTYLINE HCL [Concomitant]
  11. TRAZODONE HCL [Concomitant]
  12. MIRTAZAPINE [Concomitant]
  13. HYDROCORTISONE CREAM, 1% [Concomitant]
  14. LORAZEPAM [Concomitant]
  15. AMBIEN [Concomitant]
  16. ACETAMINOPHEN [Concomitant]
  17. ORTHO TRI-CYCLEN LO (NORGESTIMATE) [Concomitant]
  18. AMITRIPTYLINE HCL [Concomitant]
  19. VICODIN [Concomitant]
  20. AMOCIXILLIN [Concomitant]
  21. MEDROL [Concomitant]
  22. CEPHALEXIN [Concomitant]
  23. EFEXOR XR (VENLAFAXINE) [Concomitant]
  24. COPAXONE [Suspect]

REACTIONS (11)
  - AFFECTIVE DISORDER [None]
  - ALCOHOL USE [None]
  - ANXIETY [None]
  - CONDITION AGGRAVATED [None]
  - DEPRESSION [None]
  - DRUG ABUSER [None]
  - HALLUCINATION, VISUAL [None]
  - HYPERTENSION [None]
  - MULTIPLE SCLEROSIS [None]
  - PARANOIA [None]
  - TRANSAMINASES INCREASED [None]
